FAERS Safety Report 7492752-1 (Version None)
Quarter: 2011Q2

REPORT INFORMATION
  Report Type: 
  Country: None (occurrence: None)
  Receive Date: 20110519
  Receipt Date: 20110509
  Transmission Date: 20111010
  Serious: Yes (Death)
  Sender: FDA-Public Use
  Company Number: PL-GENENTECH-318700

PATIENT
  Age: 70 Year
  Sex: Male

DRUGS (5)
  1. RITUXAN [Suspect]
     Indication: CHRONIC LYMPHOCYTIC LEUKAEMIA
     Dosage: UNK
     Route: 042
  2. RITUXAN [Suspect]
     Dosage: 700 UNK, X1
     Route: 042
     Dates: start: 20110428, end: 20110428
  3. CYKLOFOSFAMID [Concomitant]
     Indication: CHRONIC LYMPHOCYTIC LEUKAEMIA
     Dosage: UNK
  4. FLUDARABINA [Concomitant]
     Indication: CHRONIC LYMPHOCYTIC LEUKAEMIA
     Dosage: UNK
  5. RITUXAN [Suspect]
     Dosage: UNK
     Route: 042

REACTIONS (3)
  - PULMONARY OEDEMA [None]
  - DIARRHOEA [None]
  - DYSPNOEA [None]
